FAERS Safety Report 5948493-2 (Version None)
Quarter: 2008Q4

REPORT INFORMATION
  Report Type: 
  Country: None (occurrence: None)
  Receive Date: 20081111
  Receipt Date: 20081106
  Transmission Date: 20090506
  Serious: Yes (Other)
  Sender: FDA-Public Use
  Company Number: B0539169A

PATIENT
  Age: 6 Year
  Sex: Female

DRUGS (1)
  1. ZENTEL [Suspect]
     Indication: INFECTION PARASITIC
     Route: 048
     Dates: start: 20080913, end: 20080914

REACTIONS (4)
  - CONVULSION [None]
  - DYSPNOEA [None]
  - FEELING OF BODY TEMPERATURE CHANGE [None]
  - HEADACHE [None]
